FAERS Safety Report 21703870 (Version 2)
Quarter: 2022Q4

REPORT INFORMATION
  Report Type: Spontaneous
  Country: JP (occurrence: JP)
  Receive Date: 20221209
  Receipt Date: 20221223
  Transmission Date: 20230113
  Serious: Yes (Other)
  Sender: FDA-Public Use
  Company Number: JP-MSD-M2022-51546

PATIENT
  Age: 65 Year
  Sex: Male

DRUGS (2)
  1. KEYTRUDA [Suspect]
     Active Substance: PEMBROLIZUMAB
     Indication: Lung adenocarcinoma stage IV
     Dosage: 200 MILLIGRAM, Q3W
     Route: 041
     Dates: start: 202112
  2. PEMETREXED DISODIUM [Suspect]
     Active Substance: PEMETREXED DISODIUM
     Dosage: UNK
     Route: 041
     Dates: start: 202112

REACTIONS (6)
  - Colon cancer [Unknown]
  - Bladder cancer [Unknown]
  - Immune-mediated hyperthyroidism [Recovered/Resolved]
  - Immune-mediated hypothyroidism [Recovered/Resolved]
  - Tumour marker increased [Unknown]
  - Therapeutic response unexpected [Unknown]

NARRATIVE: CASE EVENT DATE: 20220101
